FAERS Safety Report 4567680-1 (Version None)
Quarter: 2005Q1

REPORT INFORMATION
  Report Type: 
  Country: None (occurrence: None)
  Receive Date: 20050202
  Receipt Date: 20050120
  Transmission Date: 20050727
  Serious: Yes (Hospitalization)
  Sender: FDA-Public Use
  Company Number: US-JNJFOC-20050105800

PATIENT
  Sex: Male
  Weight: 72.58 kg

DRUGS (21)
  1. INFLIXIMAB [Suspect]
     Indication: RHEUMATOID ARTHRITIS
     Route: 042
  2. ALLOPURINOL [Concomitant]
  3. HYDROXYCHLOROQUINE SULFATE [Concomitant]
  4. ATENOLOL [Concomitant]
  5. FOLIC ACID [Concomitant]
  6. METHOTREXATE [Concomitant]
  7. MULTI-VITAMIN [Concomitant]
  8. MULTI-VITAMIN [Concomitant]
  9. MULTI-VITAMIN [Concomitant]
  10. MULTI-VITAMIN [Concomitant]
  11. MULTI-VITAMIN [Concomitant]
  12. MULTI-VITAMIN [Concomitant]
  13. MULTI-VITAMIN [Concomitant]
  14. MULTI-VITAMIN [Concomitant]
  15. OSTEO BI-FLEX [Concomitant]
  16. OSTEO BI-FLEX [Concomitant]
  17. CALCIUM GLUCONATE [Concomitant]
  18. VITAMIN E [Concomitant]
  19. COUMADIN [Concomitant]
  20. TYLENOL [Concomitant]
  21. TUMS [Concomitant]

REACTIONS (1)
  - CALCULUS BLADDER [None]
